FAERS Safety Report 18879459 (Version 1)
Quarter: 2021Q1

REPORT INFORMATION
  Report Type: Spontaneous
  Country: US (occurrence: US)
  Receive Date: 20210211
  Receipt Date: 20210211
  Transmission Date: 20210420
  Serious: Yes (Other)
  Sender: FDA-Public Use
  Company Number: US-GLAXOSMITHKLINE-US2021GSK021203

PATIENT
  Sex: Female

DRUGS (8)
  1. RANITIDINE. [Suspect]
     Active Substance: RANITIDINE
     Indication: HYPERCHLORHYDRIA
     Dosage: 150 MG, OCCASIONAL
     Route: 065
     Dates: start: 199001, end: 201001
  2. ZANTAC [Suspect]
     Active Substance: RANITIDINE HYDROCHLORIDE
     Indication: DYSPEPSIA
     Dosage: 75 MG, OCCASIONAL
     Route: 065
     Dates: start: 199001, end: 201101
  3. ZANTAC [Suspect]
     Active Substance: RANITIDINE HYDROCHLORIDE
     Indication: HYPERCHLORHYDRIA
     Dosage: 150 MG, OCCASIONAL
     Route: 065
     Dates: start: 199001, end: 201101
  4. ZANTAC [Suspect]
     Active Substance: RANITIDINE HYDROCHLORIDE
     Indication: HYPERCHLORHYDRIA
     Dosage: 150 MG, OCCASIONAL
     Route: 065
     Dates: start: 199001, end: 201101
  5. ZANTAC [Suspect]
     Active Substance: RANITIDINE HYDROCHLORIDE
     Indication: DYSPEPSIA
     Dosage: 75 MG, OCCASIONAL
     Route: 065
     Dates: start: 199001, end: 201101
  6. RANITIDINE CAPSULE [Suspect]
     Active Substance: RANITIDINE
     Indication: DYSPEPSIA
     Dosage: 75 MG,OCCASIONAL
     Route: 065
     Dates: start: 199001, end: 201001
  7. RANITIDINE CAPSULE [Suspect]
     Active Substance: RANITIDINE
     Indication: HYPERCHLORHYDRIA
     Dosage: 150 MG, OCCASIONAL
     Route: 065
     Dates: start: 199001, end: 201001
  8. RANITIDINE. [Suspect]
     Active Substance: RANITIDINE
     Indication: DYSPEPSIA
     Dosage: 75 MG, OCCASIONAL
     Route: 065
     Dates: start: 199001, end: 201001

REACTIONS (2)
  - Hepatic cancer [Unknown]
  - Colorectal cancer [Unknown]
